FAERS Safety Report 8616371-6 (Version None)
Quarter: 2012Q3

REPORT INFORMATION
  Report Type: 
  Country: None (occurrence: None)
  Receive Date: 20120823
  Receipt Date: 20120813
  Transmission Date: 20120928
  Serious: Yes (Other)
  Sender: FDA-Public Use
  Company Number: DE-ABBOTT-12P-062-0969050-00

PATIENT
  Age: 75 Year
  Sex: Male

DRUGS (3)
  1. LEUPROLIDE ACETATE [Suspect]
     Indication: PROSTATE CANCER
  2. BUSERELIN ACETATE [Suspect]
  3. BUSERELIN ACETATE [Suspect]
     Indication: PROSTATE CANCER

REACTIONS (2)
  - HEPATIC NEOPLASM MALIGNANT [None]
  - ALPHA 1 FOETOPROTEIN NORMAL [None]
